FAERS Safety Report 5239928-1 (Version None)
Quarter: 2007Q1

REPORT INFORMATION
  Report Type: 
  Country: None (occurrence: None)
  Receive Date: 20070216
  Receipt Date: 20070207
  Transmission Date: 20070707
  Serious: Yes (Hospitalization)
  Sender: FDA-Public Use
  Company Number: JP-ABBOTT-07P-087-0356336-00

PATIENT
  Sex: Female
  Weight: 46 kg

DRUGS (8)
  1. KLARICID DRY SYRUP [Suspect]
     Indication: PYREXIA
     Route: 048
     Dates: start: 20061221, end: 20061226
  2. KLARICID DRY SYRUP [Suspect]
     Indication: COUGH
  3. AMOXICILLIN HYDRATE [Suspect]
     Indication: PYREXIA
     Route: 048
     Dates: start: 20061218, end: 20061221
  4. AMOXICILLIN HYDRATE [Suspect]
     Indication: COUGH
  5. PARACETAMOL [Suspect]
     Indication: PYREXIA
     Route: 048
     Dates: start: 20061218, end: 20061224
  6. TIPEPIDINE HIBENZATE [Concomitant]
     Indication: COUGH
     Route: 048
     Dates: start: 20061218, end: 20061224
  7. L-CARBOCISTEINE [Concomitant]
     Indication: PRODUCTIVE COUGH
     Route: 048
     Dates: start: 20061218, end: 20061224
  8. CYPROHEPTADINE HYDROCHLORIDE [Concomitant]
     Indication: RHINORRHOEA
     Route: 048
     Dates: start: 20061218, end: 20061224

REACTIONS (14)
  - ABDOMINAL DISTENSION [None]
  - ABDOMINAL TENDERNESS [None]
  - ALANINE AMINOTRANSFERASE INCREASED [None]
  - ASPARTATE AMINOTRANSFERASE INCREASED [None]
  - BLOOD LACTATE DEHYDROGENASE INCREASED [None]
  - CRYING [None]
  - HYPOPROTEINAEMIA [None]
  - INSOMNIA [None]
  - LIVER DISORDER [None]
  - OEDEMA [None]
  - PNEUMONIA MYCOPLASMAL [None]
  - PROTHROMBIN TIME SHORTENED [None]
  - RASH PAPULAR [None]
  - RESTLESSNESS [None]
